FAERS Safety Report 22256529 (Version 1)
Quarter: 2023Q2

REPORT INFORMATION
  Report Type: Spontaneous
  Country: PL (occurrence: PL)
  Receive Date: 20230426
  Receipt Date: 20230426
  Transmission Date: 20230722
  Serious: Yes (Other)
  Sender: FDA-Public Use
  Company Number: PL-SUNFARM-20231090

PATIENT
  Age: 78 Year
  Sex: Female

DRUGS (21)
  1. DEXAMETHASONE [Suspect]
     Active Substance: DEXAMETHASONE
     Indication: Graves^ disease
     Dosage: GRADUALLY TAPERED DOSES
     Route: 065
  2. DEXAMETHASONE [Suspect]
     Active Substance: DEXAMETHASONE
     Indication: Thyrotoxic crisis
  3. DEXAMETHASONE [Suspect]
     Active Substance: DEXAMETHASONE
     Indication: Hypercalcaemia
  4. PROPRANOLOL [Suspect]
     Active Substance: PROPRANOLOL HYDROCHLORIDE
     Indication: Thyrotoxic crisis
     Route: 065
  5. PROPRANOLOL [Suspect]
     Active Substance: PROPRANOLOL HYDROCHLORIDE
     Indication: Hypercalcaemia
  6. PROPRANOLOL [Suspect]
     Active Substance: PROPRANOLOL HYDROCHLORIDE
     Indication: Graves^ disease
  7. SODIUM PERCHLORATE [Suspect]
     Active Substance: SODIUM PERCHLORATE
     Indication: Graves^ disease
     Route: 065
  8. SODIUM PERCHLORATE [Suspect]
     Active Substance: SODIUM PERCHLORATE
     Indication: Thyrotoxic crisis
  9. SODIUM PERCHLORATE [Suspect]
     Active Substance: SODIUM PERCHLORATE
     Indication: Hypercalcaemia
  10. METHIMAZOLE [Suspect]
     Active Substance: METHIMAZOLE
     Indication: Thyrotoxic crisis
     Route: 065
  11. METHIMAZOLE [Suspect]
     Active Substance: METHIMAZOLE
     Indication: Hypercalcaemia
  12. METHIMAZOLE [Suspect]
     Active Substance: METHIMAZOLE
     Indication: Graves^ disease
  13. VITAMIN D3 [Concomitant]
     Active Substance: CHOLECALCIFEROL
     Indication: Hyperthyroidism
     Dosage: EXCESSIVE INTAKE FOR 2 MONTHS
  14. LUGOL [Concomitant]
     Active Substance: IODINE\POTASSIUM IODIDE
     Indication: Hyperthyroidism
     Dosage: (5% IODINE, 10% POTASSIUM IODIDE, 85% WATER; 10 DROPS/DAY); EXCESSIVE INTAKE FOR 2 MONTHS
  15. MENAQUINONE 6 [Concomitant]
     Active Substance: MENAQUINONE 6
     Indication: Hyperthyroidism
     Dosage: INTAKE FOR 2 MONTHS
  16. SELENIUM [Concomitant]
     Active Substance: SELENIUM
     Indication: Hyperthyroidism
     Dosage: INTAKE FOR 2 MONTHS
  17. MAGNESIUM [Concomitant]
     Active Substance: MAGNESIUM
     Indication: Hyperthyroidism
     Dosage: INTAKE FOR 2 MONTHS
  18. COENZYME Q10 [Concomitant]
     Active Substance: DIETARY SUPPLEMENT\UBIDECARENONE
     Indication: Hyperthyroidism
     Dosage: INTAKE FOR 2 MONTHS
  19. ZINC [Concomitant]
     Active Substance: ZINC
     Indication: Hyperthyroidism
     Dosage: INTAKE FOR 2 MONTHS
  20. DIETARY SUPPLEMENT [Concomitant]
     Active Substance: DIETARY SUPPLEMENT
     Indication: Hyperthyroidism
     Dosage: D-RIBOSE SUPPLEMENTS INTAKE FOR 2 MONTHS
  21. DIGOXIN [Concomitant]
     Active Substance: DIGOXIN
     Indication: Stress cardiomyopathy

REACTIONS (2)
  - Secondary adrenocortical insufficiency [Recovered/Resolved]
  - Therapy non-responder [Unknown]
